FAERS Safety Report 10221544 (Version 1)
Quarter: 2014Q2

REPORT INFORMATION
  Report Type: Spontaneous
  Country: US (occurrence: US)
  Receive Date: 20140606
  Receipt Date: 20140606
  Transmission Date: 20141212
  Serious: No
  Sender: FDA-Public Use
  Company Number: US-GILEAD-2014-0104060

PATIENT
  Age: 49 Year
  Sex: Female

DRUGS (1)
  1. SOVALDI [Suspect]
     Indication: HEPATITIS C
     Dosage: UNK
     Route: 065

REACTIONS (2)
  - Pruritus [Unknown]
  - Skin exfoliation [Unknown]
